FAERS Safety Report 10901678 (Version 2)
Quarter: 2015Q2

REPORT INFORMATION
  Report Type: Report from Study
  Country: GB (occurrence: GB)
  Receive Date: 20150310
  Receipt Date: 20150609
  Transmission Date: 20150821
  Serious: Yes (Other)
  Sender: FDA-Public Use
  Company Number: GB-JNJFOC-20150207003

PATIENT
  Sex: Female

DRUGS (1)
  1. STELARA [Suspect]
     Active Substance: USTEKINUMAB
     Indication: PSORIASIS
     Dosage: 45 MG ON WEEK 4
     Route: 058
     Dates: start: 20150110

REACTIONS (13)
  - Burning sensation [Recovered/Resolved]
  - Fatigue [Unknown]
  - Pain in extremity [Unknown]
  - Musculoskeletal stiffness [Unknown]
  - Pharyngitis [Unknown]
  - Lethargy [Unknown]
  - Oral candidiasis [Unknown]
  - Limb discomfort [Unknown]
  - Malaise [Unknown]
  - Myalgia [Unknown]
  - Depression [Unknown]
  - Gastrointestinal candidiasis [Unknown]
  - Pain [Unknown]

NARRATIVE: CASE EVENT DATE: 2015
